FAERS Safety Report 4920715-6 (Version None)
Quarter: 2006Q1

REPORT INFORMATION
  Report Type: 
  Country: None (occurrence: None)
  Receive Date: 20060113
  Receipt Date: 20050915
  Transmission Date: 20060701
  Serious: No
  Sender: FDA-Public Use
  Company Number: 2005SP000922

PATIENT
  Age: 74 Year
  Sex: Male
  Weight: 80.7403 kg

DRUGS (4)
  1. LUNESTA [Suspect]
     Indication: INSOMNIA
     Dosage: 2 MG;HS;ORAL
     Route: 048
     Dates: start: 20050520, end: 20050523
  2. TOPROL-XL [Concomitant]
  3. LIPITOR [Concomitant]
  4. DIOVAN [Concomitant]

REACTIONS (2)
  - EYE SWELLING [None]
  - RASH [None]
